FAERS Safety Report 15429091 (Version 9)
Quarter: 2019Q4

REPORT INFORMATION
  Report Type: Spontaneous
  Country: US (occurrence: US)
  Receive Date: 20180926
  Receipt Date: 20191216
  Transmission Date: 20200122
  Serious: No
  Sender: FDA-Public Use
  Company Number: US-PFIZER INC-2018380947

PATIENT
  Age: 6 Year
  Sex: Male
  Weight: 17 kg

DRUGS (5)
  1. GENOTROPIN [Suspect]
     Active Substance: SOMATROPIN
     Indication: GROWTH HORMONE DEFICIENCY
     Dosage: 1.0 MG, DAILY
     Route: 058
     Dates: start: 20180915
  2. RITALIN [Concomitant]
     Active Substance: METHYLPHENIDATE HYDROCHLORIDE
     Dosage: 10 MG, UNK
  3. GUANFACINE. [Concomitant]
     Active Substance: GUANFACINE
     Dosage: UNK
  4. GENOTROPIN [Suspect]
     Active Substance: SOMATROPIN
     Dosage: 0.8 MG, UNK, [INJECTED IN THE LEG OR BUTTOCK]
     Route: 058
     Dates: start: 201809
  5. GENOTROPIN [Suspect]
     Active Substance: SOMATROPIN
     Dosage: (0.8) 1X/DAY
     Route: 058

REACTIONS (7)
  - Product dose omission [Unknown]
  - Wrong technique in device usage process [Unknown]
  - Injection site haemorrhage [Not Recovered/Not Resolved]
  - Needle issue [Unknown]
  - Increased appetite [Unknown]
  - Device breakage [Unknown]
  - Injection site pain [Not Recovered/Not Resolved]

NARRATIVE: CASE EVENT DATE: 20180929
